FAERS Safety Report 5307975-7 (Version None)
Quarter: 2007Q2

REPORT INFORMATION
  Report Type: 
  Country: None (occurrence: None)
  Receive Date: 20070426
  Receipt Date: 20070418
  Transmission Date: 20071010
  Serious: Yes (Death, Life-Threatening)
  Sender: FDA-Public Use
  Company Number: 2007UW07598

PATIENT
  Age: 58 Year
  Sex: Male

DRUGS (5)
  1. SEROQUEL [Suspect]
     Route: 048
  2. VERAPAMIL [Suspect]
  3. PROPRANOLOL [Concomitant]
  4. CATAPRES [Concomitant]
  5. GLIPIZIDE [Concomitant]

REACTIONS (1)
  - COMPLETED SUICIDE [None]
